FAERS Safety Report 20890354 (Version 1)
Quarter: 2022Q2

REPORT INFORMATION
  Report Type: Spontaneous
  Country: CN (occurrence: CN)
  Receive Date: 20220530
  Receipt Date: 20220530
  Transmission Date: 20220721
  Serious: Yes (Death, Other)
  Sender: FDA-Public Use
  Company Number: CN-AMGEN-CHNSP2022091417

PATIENT

DRUGS (1)
  1. EVOLOCUMAB [Suspect]
     Active Substance: EVOLOCUMAB
     Indication: Acute coronary syndrome
     Dosage: UNK
     Route: 065

REACTIONS (12)
  - Death [Fatal]
  - Cardiovascular disorder [Fatal]
  - Angina unstable [Unknown]
  - Ischaemic stroke [Unknown]
  - Cognitive disorder [Unknown]
  - Myocardial infarction [Unknown]
  - Diabetes mellitus [Unknown]
  - Cataract [Unknown]
  - Adverse event [Unknown]
  - Muscle disorder [Unknown]
  - Blood creatine phosphokinase increased [Unknown]
  - Alanine aminotransferase increased [Unknown]
